FAERS Safety Report 16597240 (Version 1)
Quarter: 2019Q3

REPORT INFORMATION
  Report Type: Spontaneous
  Country: US (occurrence: US)
  Receive Date: 20190718
  Receipt Date: 20190718
  Transmission Date: 20191004
  Serious: No
  Sender: FDA-Public Use
  Company Number: None

PATIENT
  Age: 59 Year
  Sex: Male
  Weight: 87.75 kg

DRUGS (1)
  1. ACTIVEYES NIGHTTIME LUB EYE OINTMENT PRESERVATIVE FREE NDC#: 59390-190 [Suspect]
     Active Substance: MINERAL OIL\PETROLATUM
     Indication: DRY EYE
     Dosage: ?          QUANTITY:1 TUBE;?
     Route: 047
     Dates: start: 20190716, end: 20190717

REACTIONS (3)
  - Eye irritation [None]
  - Product contamination [None]
  - Recalled product administered [None]

NARRATIVE: CASE EVENT DATE: 20190716
